FAERS Safety Report 10178179 (Version 2)
Quarter: 2014Q2

REPORT INFORMATION
  Report Type: Spontaneous
  Country: CH (occurrence: CH)
  Receive Date: 20140519
  Receipt Date: 20140519
  Transmission Date: 20141212
  Serious: Yes (Life-Threatening, Hospitalization, Disabling, Other)
  Sender: FDA-Public Use
  Company Number: CH-ASTRAZENECA-2014SE29941

PATIENT
  Age: 29866 Day
  Sex: Female

DRUGS (10)
  1. CRESTOR [Suspect]
     Indication: HYPERCHOLESTEROLAEMIA
     Route: 048
     Dates: start: 20131007, end: 20131010
  2. BRILIQUE [Concomitant]
     Indication: CARDIOVASCULAR EVENT PROPHYLAXIS
     Dates: start: 20130822
  3. ASPIRIN CARDIO [Concomitant]
  4. CANDESARTAN [Concomitant]
  5. AMLODIPINE [Concomitant]
  6. METOPROLOL [Concomitant]
  7. PANTOZOL [Concomitant]
  8. INSULIN LEVEMIR [Concomitant]
     Dosage: IN THE EVENING
  9. INSULIN NOVORAPID [Concomitant]
     Dosage: WITH MEALS, 3 TIMES DAILY
  10. ATORVASTATIN [Concomitant]
     Indication: HYPERCHOLESTEROLAEMIA

REACTIONS (12)
  - Circulatory collapse [Recovered/Resolved]
  - Fall [Unknown]
  - Confusional state [Unknown]
  - Decreased appetite [Unknown]
  - Vomiting [Unknown]
  - Hepatitis [Recovered/Resolved]
  - Nausea [Recovered/Resolved]
  - Muscular weakness [Recovered/Resolved]
  - Dizziness [Recovered/Resolved]
  - Asthenia [Recovered/Resolved]
  - Diabetes mellitus inadequate control [Recovered/Resolved]
  - Jaundice [Unknown]
